FAERS Safety Report 13513763 (Version 1)
Quarter: 2017Q2

REPORT INFORMATION
  Report Type: Spontaneous
  Country: US (occurrence: US)
  Receive Date: 20170504
  Receipt Date: 20170504
  Transmission Date: 20170830
  Serious: No
  Sender: FDA-Public Use
  Company Number: US-ARBOR PHARMACEUTICALS, LLC-US-2016ARB002460

PATIENT

DRUGS (2)
  1. ERY-TAB [Suspect]
     Active Substance: ERYTHROMYCIN
     Indication: UPPER RESPIRATORY TRACT INFECTION
     Dosage: UNK
     Dates: start: 20161221, end: 20161222
  2. ERY-TAB [Suspect]
     Active Substance: ERYTHROMYCIN
     Dosage: UNK
     Dates: start: 20161226, end: 20161226

REACTIONS (9)
  - Vulvovaginal pruritus [Unknown]
  - Pallor [Unknown]
  - Dry throat [Unknown]
  - Feeling cold [Unknown]
  - Malaise [Recovering/Resolving]
  - Ear discomfort [Unknown]
  - Head discomfort [Unknown]
  - Pruritus [Unknown]
  - Dizziness [Unknown]

NARRATIVE: CASE EVENT DATE: 201612
